FAERS Safety Report 13014836 (Version 4)
Quarter: 2017Q1

REPORT INFORMATION
  Report Type: Spontaneous
  Country: US (occurrence: US)
  Receive Date: 20161209
  Receipt Date: 20170227
  Transmission Date: 20170428
  Serious: Yes (Other)
  Sender: FDA-Public Use
  Company Number: US-BAUSCH-BL-2016-030835

PATIENT
  Sex: Female
  Weight: 74.91 kg

DRUGS (4)
  1. IMURAN [Concomitant]
     Active Substance: AZATHIOPRINE
     Indication: COLITIS ULCERATIVE
  2. APRISO [Suspect]
     Active Substance: MESALAMINE
     Indication: COLITIS ULCERATIVE
     Dosage: 6 TABLETS ORALLY DAILY
     Route: 048
     Dates: start: 20160913
  3. 6-MP [Concomitant]
     Active Substance: MERCAPTOPURINE
     Indication: COLITIS ULCERATIVE
     Dosage: ONE TABLET DAILY
     Route: 048
  4. UCERIS [Suspect]
     Active Substance: BUDESONIDE
     Indication: COLITIS ULCERATIVE
     Route: 048
     Dates: start: 201605

REACTIONS (5)
  - Abdominal pain [Unknown]
  - Colitis ulcerative [Recovering/Resolving]
  - Pancreatitis [Recovering/Resolving]
  - Incorrect drug administration duration [Unknown]
  - Bowel movement irregularity [Unknown]
